FAERS Safety Report 9086647 (Version 2)
Quarter: 2013Q1

REPORT INFORMATION
  Report Type: Spontaneous
  Country: JP (occurrence: JP)
  Receive Date: 20130131
  Receipt Date: 20130219
  Transmission Date: 20140127
  Serious: Yes (Other)
  Sender: FDA-Public Use
  Company Number: JP-PFIZER INC-2013035627

PATIENT
  Age: 10 Year
  Sex: 0

DRUGS (1)
  1. CORTRIL [Suspect]
     Indication: HYPERADRENOCORTICISM
     Dosage: UNK
     Route: 048

REACTIONS (1)
  - Otitis media [Unknown]
